FAERS Safety Report 14228652 (Version 2)
Quarter: 2017Q4

REPORT INFORMATION
  Report Type: Spontaneous
  Country: DE (occurrence: DE)
  Receive Date: 20171128
  Receipt Date: 20171211
  Transmission Date: 20180321
  Serious: Yes (Other)
  Sender: FDA-Public Use
  Company Number: DE-BRISTOL-MYERS SQUIBB COMPANY-BMS-2017-100756

PATIENT
  Sex: Male

DRUGS (1)
  1. NIVOLUMAB [Suspect]
     Active Substance: NIVOLUMAB
     Indication: HODGKIN^S DISEASE
     Dosage: 200 MG, UNK
     Route: 065
     Dates: start: 20150624, end: 201709

REACTIONS (3)
  - Malignant neoplasm progression [Unknown]
  - Product use in unapproved indication [Unknown]
  - Pyrexia [Unknown]

NARRATIVE: CASE EVENT DATE: 20150624
